FAERS Safety Report 16028812 (Version 5)
Quarter: 2019Q2

REPORT INFORMATION
  Report Type: Spontaneous
  Country: JP (occurrence: JP)
  Receive Date: 20190304
  Receipt Date: 20190623
  Transmission Date: 20190711
  Serious: Yes (Death, Other)
  Sender: FDA-Public Use
  Company Number: PHJP2019JP002590

PATIENT
  Age: 55 Year
  Sex: Male

DRUGS (3)
  1. SOBUZOXANE [Concomitant]
     Active Substance: SOBUZOXANE
     Indication: PRODUCT USED FOR UNKNOWN INDICATION
     Dosage: UNK
     Route: 048
  2. NEORAL [Suspect]
     Active Substance: CYCLOSPORINE
     Indication: PROPHYLAXIS AGAINST GRAFT VERSUS HOST DISEASE
     Dosage: UNK
     Route: 048
     Dates: start: 201703
  3. MOGAMULIZUMAB [Concomitant]
     Active Substance: MOGAMULIZUMAB
     Indication: PRODUCT USED FOR UNKNOWN INDICATION
     Dosage: UNK
     Route: 065

REACTIONS (12)
  - Pollakiuria [Unknown]
  - Platelet count decreased [Fatal]
  - Muscular weakness [Unknown]
  - Chronic graft versus host disease [Unknown]
  - Haemorrhage [Fatal]
  - Tropical spastic paresis [Recovering/Resolving]
  - Haemophagocytic lymphohistiocytosis [Unknown]
  - Immune thrombocytopenic purpura [Fatal]
  - Dermatitis exfoliative generalised [Unknown]
  - Acute graft versus host disease [Unknown]
  - Pyrexia [Unknown]
  - Lumbar spinal stenosis [Unknown]

NARRATIVE: CASE EVENT DATE: 201704
